FAERS Safety Report 25023809 (Version 2)
Quarter: 2025Q1

REPORT INFORMATION
  Report Type: Spontaneous
  Country: US (occurrence: US)
  Receive Date: 20250228
  Receipt Date: 20250325
  Transmission Date: 20250409
  Serious: No
  Sender: BAYER HEALTHCARE PHARMACEUTICALS INC.
  Company Number: US-BAYER-2025A027256

PATIENT
  Age: 31 Year
  Sex: Female

DRUGS (1)
  1. MIRENA [Suspect]
     Active Substance: LEVONORGESTREL
     Dosage: 20?G/DAY
     Route: 015
     Dates: start: 20220727, end: 20240830

REACTIONS (4)
  - Abdominal pain lower [None]
  - Dyspareunia [None]
  - Device expulsion [Recovered/Resolved]
  - Post procedural haemorrhage [None]

NARRATIVE: CASE EVENT DATE: 20240801
